FAERS Safety Report 9006205 (Version 1)
Quarter: 2013Q1

REPORT INFORMATION
  Report Type: Spontaneous
  Country: US (occurrence: US)
  Receive Date: 20130110
  Receipt Date: 20130110
  Transmission Date: 20140127
  Serious: Yes (Hospitalization, Other)
  Sender: FDA-Public Use
  Company Number: US-009507513-1301USA001637

PATIENT
  Age: 51 Year
  Sex: Female

DRUGS (5)
  1. MONTELUKAST SODIUM [Suspect]
     Dosage: 10 MG (10 MG, 1 IN 1 D)
  2. VALPROATE SODIUM [Suspect]
     Dosage: 500 MG TO 1200 MG (4 IN 1 D)
     Route: 048
  3. PHENYTOIN SODIUM [Suspect]
     Dosage: 300 MG TO 325 MG
     Route: 048
  4. PERINDOPRIL [Concomitant]
     Indication: ASTHMA
  5. BENDROFLUMETHIAZIDE [Concomitant]
     Indication: EPILEPSY

REACTIONS (3)
  - Epilepsy [Unknown]
  - Drug interaction [Unknown]
  - Condition aggravated [Unknown]
